FAERS Safety Report 10076640 (Version 3)
Quarter: 2017Q2

REPORT INFORMATION
  Report Type: Spontaneous
  Country: US (occurrence: US)
  Receive Date: 20140414
  Receipt Date: 20170407
  Transmission Date: 20170829
  Serious: No
  Sender: FDA-Public Use
  Company Number: US-PFIZER INC-2014099967

PATIENT
  Age: 41 Year
  Sex: Female

DRUGS (7)
  1. VICODIN [Suspect]
     Active Substance: ACETAMINOPHEN\HYDROCODONE BITARTRATE
     Dosage: UNK
  2. COMPAZINE [Suspect]
     Active Substance: PROCHLORPERAZINE MALEATE
     Dosage: UNK
  3. DEPO-PROVERA [Suspect]
     Active Substance: MEDROXYPROGESTERONE ACETATE
     Dosage: UNK
  4. ROCEPHINE [Suspect]
     Active Substance: CEFTRIAXONE SODIUM
     Dosage: UNK
  5. DIAMOX SEQUELS [Suspect]
     Active Substance: ACETAZOLAMIDE
     Dosage: UNK
  6. STADOL [Suspect]
     Active Substance: BUTORPHANOL TARTRATE
     Dosage: UNK
  7. NORCO [Suspect]
     Active Substance: ACETAMINOPHEN\HYDROCODONE BITARTRATE
     Dosage: UNK

REACTIONS (1)
  - Drug hypersensitivity [Unknown]
